FAERS Safety Report 6025918-8 (Version None)
Quarter: 2009Q1

REPORT INFORMATION
  Report Type: 
  Country: None (occurrence: None)
  Receive Date: 20090102
  Receipt Date: 20081223
  Transmission Date: 20090719
  Serious: Yes (Other)
  Sender: FDA-Public Use
  Company Number: GB-ROCHE-604622

PATIENT
  Sex: Male

DRUGS (3)
  1. INVIRASE [Suspect]
     Indication: DRUG USE FOR UNKNOWN INDICATION
     Dosage: RECEIVED VIA A PEG TUBE
     Route: 065
  2. PROTEASE INHIBITOR NOS [Concomitant]
  3. NON-NUCLEOSIDE REVERSE TRANSCRIPTASE INHIBITOR NOS [Concomitant]

REACTIONS (1)
  - THROAT CANCER [None]
